FAERS Safety Report 21100808 (Version 2)
Quarter: 2022Q3

REPORT INFORMATION
  Report Type: Report from Study
  Country: CA (occurrence: CA)
  Receive Date: 20220719
  Receipt Date: 20220916
  Transmission Date: 20221027
  Serious: Yes (Hospitalization, Other)
  Sender: FDA-Public Use
  Company Number: CA-BoehringerIngelheim-2022-BI-176706

PATIENT
  Age: 67 Year
  Sex: Female

DRUGS (2)
  1. OFEV [Suspect]
     Active Substance: NINTEDANIB
     Indication: Idiopathic pulmonary fibrosis
     Route: 048
     Dates: start: 20211212, end: 20220421
  2. OFEV [Suspect]
     Active Substance: NINTEDANIB

REACTIONS (16)
  - Sepsis [Recovered/Resolved]
  - Pneumonia [Recovering/Resolving]
  - Dyspepsia [Recovered/Resolved]
  - Sepsis [Recovered/Resolved]
  - Vascular occlusion [Not Recovered/Not Resolved]
  - Haemoptysis [Recovering/Resolving]
  - Uterine dilation and curettage [Unknown]
  - Post procedural haemorrhage [Not Recovered/Not Resolved]
  - Back pain [Not Recovered/Not Resolved]
  - Nasopharyngitis [Not Recovered/Not Resolved]
  - Blood bilirubin decreased [Unknown]
  - Device related infection [Not Recovered/Not Resolved]
  - Precancerous condition [Not Recovered/Not Resolved]
  - Feeling abnormal [Recovered/Resolved with Sequelae]
  - Blood pressure fluctuation [Not Recovered/Not Resolved]
  - Arrhythmia [Not Recovered/Not Resolved]

NARRATIVE: CASE EVENT DATE: 20220428
